FAERS Safety Report 5815544-5 (Version None)
Quarter: 2008Q3

REPORT INFORMATION
  Report Type: 
  Country: None (occurrence: None)
  Receive Date: 20080718
  Receipt Date: 20080707
  Transmission Date: 20090109
  Serious: Yes (Hospitalization, Other)
  Sender: FDA-Public Use
  Company Number: US-PFIZER INC-2008057895

PATIENT
  Sex: Female
  Weight: 98.4 kg

DRUGS (9)
  1. LYRICA [Suspect]
     Indication: PAIN
  2. METFORMIN HCL [Concomitant]
     Dosage: DAILY DOSE:2000MG
  3. INSULIN GLARGINE [Concomitant]
  4. DIOVAN HCT [Concomitant]
  5. ATENOLOL [Concomitant]
  6. CLONAZEPAM [Concomitant]
  7. MORPHINE [Concomitant]
  8. MORPHINE [Concomitant]
  9. ZOLPIDEM [Concomitant]

REACTIONS (10)
  - BALANCE DISORDER [None]
  - BLOOD GLUCOSE INCREASED [None]
  - DIABETES MELLITUS [None]
  - INCREASED APPETITE [None]
  - MYALGIA [None]
  - OEDEMA PERIPHERAL [None]
  - SOMNOLENCE [None]
  - URTICARIA [None]
  - VISION BLURRED [None]
  - WEIGHT INCREASED [None]
